FAERS Safety Report 16902474 (Version 4)
Quarter: 2020Q1

REPORT INFORMATION
  Report Type: Report from Study
  Country: None (occurrence: US)
  Receive Date: 20191010
  Receipt Date: 20200224
  Transmission Date: 20200409
  Serious: Yes (Hospitalization)
  Sender: FDA-Public Use
  Company Number: US-INSMED, INC.-US-INS-19-03035

PATIENT
  Sex: Female
  Weight: 51.25 kg

DRUGS (3)
  1. LAMIRA NEBULIZER SYSTEM [Suspect]
     Active Substance: DEVICE
  2. ARIKAYCE [Suspect]
     Active Substance: AMIKACIN
     Route: 055
     Dates: start: 2019, end: 2019
  3. ARIKAYCE [Suspect]
     Active Substance: AMIKACIN
     Indication: MYCOBACTERIAL INFECTION
     Route: 055
     Dates: start: 20190320, end: 2019

REACTIONS (7)
  - Hypoacusis [Unknown]
  - Periorbital swelling [Unknown]
  - Renal disorder [Unknown]
  - Malaise [Unknown]
  - Off label use [Unknown]
  - Hospitalisation [Unknown]
  - Dizziness [Unknown]

NARRATIVE: CASE EVENT DATE: 2019
